FAERS Safety Report 5662109-4 (Version None)
Quarter: 2008Q1

REPORT INFORMATION
  Report Type: 
  Country: None (occurrence: None)
  Receive Date: 20080310
  Receipt Date: 20080310
  Transmission Date: 20080703
  Serious: Yes (Hospitalization)
  Sender: FDA-Public Use
  Company Number: None

PATIENT
  Sex: Female
  Weight: 61 kg

DRUGS (3)
  1. CARBOPLATIN [Suspect]
     Dosage: 912 MG
  2. ERBITUX [Suspect]
     Dosage: 3204 MG
  3. ALIMTA [Suspect]
     Dosage: 3364 MG

REACTIONS (1)
  - CATHETER RELATED INFECTION [None]
